FAERS Safety Report 16879978 (Version 1)
Quarter: 2019Q4

REPORT INFORMATION
  Report Type: Report from Study
  Country: None (occurrence: AE)
  Receive Date: 20191003
  Receipt Date: 20191003
  Transmission Date: 20200122
  Serious: Yes (Life-Threatening, Other)
  Sender: FDA-Public Use
  Company Number: AE-ABBVIE-19K-166-2919740-00

PATIENT
  Age: 28 Year
  Sex: Male
  Weight: 68 kg

DRUGS (1)
  1. HUMIRA [Suspect]
     Active Substance: ADALIMUMAB
     Indication: CROHN^S DISEASE
     Route: 058
     Dates: start: 20180319

REACTIONS (7)
  - Dizziness [Unknown]
  - Intentional product misuse [Unknown]
  - Uveitis [Unknown]
  - Syncope [Unknown]
  - Headache [Unknown]
  - Crohn^s disease [Unknown]
  - Syncope [Unknown]

NARRATIVE: CASE EVENT DATE: 2019
